FAERS Safety Report 25917467 (Version 2)
Quarter: 2025Q4

REPORT INFORMATION
  Report Type: Spontaneous
  Country: JP (occurrence: JP)
  Receive Date: 20251014
  Receipt Date: 20251126
  Transmission Date: 20260117
  Serious: Yes (Hospitalization, Other)
  Sender: MERCK SHARP & DOHME LLC
  Company Number: JP-009507513-2337063

PATIENT
  Age: 83 Year
  Sex: Female
  Weight: 47 kg

DRUGS (3)
  1. JANUVIA [Suspect]
     Active Substance: SITAGLIPTIN PHOSPHATE
     Indication: Diabetes mellitus
     Dosage: 50 MG, TWICE A DAY
     Route: 048
     Dates: end: 20241129
  2. EBASTINE [Suspect]
     Active Substance: EBASTINE
     Indication: Rhinitis allergic
     Dosage: 10 MG DAILY
     Dates: end: 20241129
  3. SUPLATAST TOSILATE [Suspect]
     Active Substance: SUPLATAST TOSILATE
     Dosage: UNKNOWN

REACTIONS (3)
  - Hypereosinophilic syndrome [Recovered/Resolved]
  - Pericardial effusion [Recovered/Resolved]
  - Inappropriate schedule of product administration [Unknown]

NARRATIVE: CASE EVENT DATE: 20241126
